FAERS Safety Report 7006118-1 (Version None)
Quarter: 2010Q3

REPORT INFORMATION
  Report Type: 
  Country: None (occurrence: None)
  Receive Date: 20100921
  Receipt Date: 20100910
  Transmission Date: 20110219
  Serious: Yes (Disabling, Other)
  Sender: FDA-Public Use
  Company Number: US-PFIZER INC-2010100879

PATIENT
  Sex: Female
  Weight: 43.537 kg

DRUGS (3)
  1. PROCARDIA [Suspect]
     Indication: HYPERTENSION
     Dosage: 30 MG, 1X/DAY
     Route: 048
     Dates: start: 20070401
  2. ATENOLOL [Suspect]
     Indication: HYPERTENSION
     Dosage: 25 MG, 1X/DAY
     Route: 048
     Dates: start: 20070301
  3. LORAZEPAM [Concomitant]
     Indication: ANXIETY
     Dosage: 1 MG, 4X/DAY
     Route: 048

REACTIONS (11)
  - BLOOD POTASSIUM DECREASED [None]
  - DEAFNESS [None]
  - DEPRESSION [None]
  - EPHELIDES [None]
  - FATIGUE [None]
  - GASTRIC DISORDER [None]
  - HYPOTENSION [None]
  - HYPOVITAMINOSIS [None]
  - LETHARGY [None]
  - RASH [None]
  - VISION BLURRED [None]
